FAERS Safety Report 11992057 (Version 1)
Quarter: 2016Q1

REPORT INFORMATION
  Report Type: Spontaneous
  Country: US (occurrence: US)
  Receive Date: 20160203
  Receipt Date: 20160203
  Transmission Date: 20160526
  Serious: No
  Sender: FDA-Public Use
  Company Number: US-JNJFOC-20151209230

PATIENT
  Age: 50 Year
  Sex: Male
  Weight: 140.62 kg

DRUGS (1)
  1. TYLENOL EXTRA STRENGTH [Suspect]
     Active Substance: ACETAMINOPHEN
     Indication: GOUT
     Dosage: 3 CAPLETS
     Route: 048
     Dates: start: 20151207

REACTIONS (3)
  - Incorrect dose administered [Unknown]
  - Therapeutic response unexpected [Unknown]
  - Off label use [Unknown]
